FAERS Safety Report 12878988 (Version 1)
Quarter: 2016Q4

REPORT INFORMATION
  Report Type: Spontaneous
  Country: US (occurrence: US)
  Receive Date: 20161024
  Receipt Date: 20161024
  Transmission Date: 20170207
  Serious: No
  Sender: FDA-Public Use
  Company Number: US-PRESTIGE BRANDS -1058730

PATIENT
  Sex: Female

DRUGS (1)
  1. MONISTAT COMPLETE CARE INSTANT ITCH RELIEF [Suspect]
     Active Substance: HYDROCORTISONE
     Indication: VULVOVAGINAL MYCOTIC INFECTION
     Route: 067

REACTIONS (3)
  - Vulvovaginal burning sensation [Unknown]
  - Malaise [Unknown]
  - Nausea [Unknown]
